FAERS Safety Report 14726452 (Version 1)
Quarter: 2018Q2

REPORT INFORMATION
  Report Type: Spontaneous
  Country: US (occurrence: US)
  Receive Date: 20180406
  Receipt Date: 20180406
  Transmission Date: 20180711
  Serious: No
  Sender: FDA-Public Use
  Company Number: US-JNJFOC-20180327626

PATIENT
  Sex: Male
  Weight: 78.47 kg

DRUGS (4)
  1. CORTENEMA [Concomitant]
     Active Substance: HYDROCORTISONE
     Indication: INFLAMMATION
     Route: 054
  2. STELARA [Suspect]
     Active Substance: USTEKINUMAB
     Indication: INFLAMMATORY BOWEL DISEASE
     Route: 042
     Dates: start: 20180212
  3. CORTIFOAM [Concomitant]
     Active Substance: HYDROCORTISONE ACETATE
     Indication: INFLAMMATION
     Route: 054
  4. PREDNISONE. [Concomitant]
     Active Substance: PREDNISONE
     Indication: INFLAMMATORY BOWEL DISEASE
     Route: 065
     Dates: start: 201801

REACTIONS (1)
  - Drug ineffective [Unknown]
